FAERS Safety Report 18759317 (Version 1)
Quarter: 2021Q1

REPORT INFORMATION
  Report Type: Spontaneous
  Country: US (occurrence: US)
  Receive Date: 20210120
  Receipt Date: 20210120
  Transmission Date: 20210419
  Serious: Yes (Other)
  Sender: FDA-Public Use
  Company Number: US-BIOVITRUM-2021US0439

PATIENT
  Sex: Male
  Weight: 6 kg

DRUGS (1)
  1. SYNAGIS [Suspect]
     Active Substance: PALIVIZUMAB
     Indication: PRODUCT USED FOR UNKNOWN INDICATION
     Dosage: SYNAGIS 100MG/1ML VL LIQUID
     Route: 030

REACTIONS (2)
  - Chronic obstructive pulmonary disease [Unknown]
  - Bronchopulmonary dysplasia [Unknown]
